FAERS Safety Report 18327974 (Version 2)
Quarter: 2020Q4

REPORT INFORMATION
  Report Type: Spontaneous
  Country: US (occurrence: US)
  Receive Date: 20200930
  Receipt Date: 20201014
  Transmission Date: 20210113
  Serious: No
  Sender: FDA-Public Use
  Company Number: US-APOTEX-2020AP016708

PATIENT
  Sex: Female

DRUGS (2)
  1. AZELASTINE HYDROCHLORIDE AND FLUTICASONE PROPIONATE NASAL SPRAY [Suspect]
     Active Substance: AZELASTINE HYDROCHLORIDE\FLUTICASONE PROPIONATE
     Indication: SINUS DISORDER
     Dosage: 2 DOSAGE FORM TWO SPRAYS IN EACH NOSTRIL TWICE PER DAY
     Route: 045
  2. AZELASTINE HYDROCHLORIDE AND FLUTICASONE PROPIONATE NASAL SPRAY [Suspect]
     Active Substance: AZELASTINE HYDROCHLORIDE\FLUTICASONE PROPIONATE
     Indication: HYPERSENSITIVITY
     Dosage: 1 DOSAGE FORM, BID ONE SPRAY IN EACH NOSTRIL TWICE PER DAY
     Route: 045

REACTIONS (9)
  - Sinus disorder [Recovered/Resolved]
  - Drug ineffective [Unknown]
  - Aphonia [Recovered/Resolved]
  - Condition aggravated [Recovered/Resolved]
  - Sinus congestion [Recovered/Resolved]
  - Rhinorrhoea [Recovered/Resolved]
  - Headache [Recovered/Resolved]
  - Nausea [Recovered/Resolved]
  - Ocular discomfort [Recovered/Resolved]
